FAERS Safety Report 5419804-1 (Version None)
Quarter: 2007Q3

REPORT INFORMATION
  Report Type: 
  Country: None (occurrence: None)
  Receive Date: 20070820
  Receipt Date: 20070810
  Transmission Date: 20080115
  Serious: Yes (Other)
  Sender: FDA-Public Use
  Company Number: FR-PFIZER INC-2007067858

PATIENT
  Age: 44 Year
  Sex: Male

DRUGS (5)
  1. CHAMPIX [Suspect]
     Indication: SMOKING CESSATION THERAPY
  2. LIPANOR [Concomitant]
  3. MAXEPA [Concomitant]
  4. HYTACAND [Concomitant]
  5. KARDEGIC [Concomitant]

REACTIONS (2)
  - HEPATITIS ALCOHOLIC [None]
  - HYPERTRIGLYCERIDAEMIA [None]
